FAERS Safety Report 20703994 (Version 1)
Quarter: 2022Q2

REPORT INFORMATION
  Report Type: Spontaneous
  Country: FR (occurrence: FR)
  Receive Date: 20220413
  Receipt Date: 20220413
  Transmission Date: 20220720
  Serious: Yes (Hospitalization, Other)
  Sender: FDA-Public Use
  Company Number: None

PATIENT
  Age: 24 Year
  Sex: Male
  Weight: 66 kg

DRUGS (4)
  1. NIVOLUMAB [Suspect]
     Active Substance: NIVOLUMAB
     Indication: Malignant melanoma stage IV
     Dosage: OPDIVO 10 MG/ML, SOLUTION A DILUER POUR PERFUSION
     Route: 041
     Dates: start: 20210222, end: 20210406
  2. IPILIMUMAB [Suspect]
     Active Substance: IPILIMUMAB
     Indication: Malignant melanoma stage IV
     Dosage: YERVOY 5 MG/ML, SOLUTION A DILUER POUR PERFUSION
     Route: 041
     Dates: start: 20210222, end: 20210406
  3. TRAMADOL (CHLORHYDATE DE) [Concomitant]
     Indication: Neck pain
     Route: 048
     Dates: start: 20210315, end: 20210514
  4. ONDANSETRON [Concomitant]
     Active Substance: ONDANSETRON
     Indication: Vomiting
     Dosage: 8 MG TOUTES LES 12 HEURES SI NAUSEES
     Route: 048
     Dates: start: 20210406

REACTIONS (4)
  - Haemophagocytic lymphohistiocytosis [Unknown]
  - Immune-mediated enterocolitis [Recovered/Resolved]
  - Hepatitis cholestatic [Recovered/Resolved]
  - Intentional product use issue [Unknown]

NARRATIVE: CASE EVENT DATE: 20210413
